FAERS Safety Report 13792665 (Version 1)
Quarter: 2017Q3

REPORT INFORMATION
  Report Type: Spontaneous
  Country: US (occurrence: US)
  Receive Date: 20170726
  Receipt Date: 20170726
  Transmission Date: 20171127
  Serious: No
  Sender: FDA-Public Use
  Company Number: US-BAYER-2017-142595

PATIENT
  Sex: Female
  Weight: 63.99 kg

DRUGS (3)
  1. MIDOL EXTENDED RELIEF [Suspect]
     Active Substance: NAPROXEN SODIUM
     Dosage: UNK
     Route: 065
  2. BAYER ASPIRIN [Suspect]
     Active Substance: ASPIRIN
     Indication: PAIN
     Dosage: UNK
     Route: 048
     Dates: end: 1992
  3. INSULIN INJECTION [Concomitant]
     Active Substance: INSULIN NOS
     Dosage: UNK

REACTIONS (2)
  - Pruritus [Unknown]
  - Drug effect decreased [Unknown]

NARRATIVE: CASE EVENT DATE: 1992
